FAERS Safety Report 20698349 (Version 5)
Quarter: 2022Q3

REPORT INFORMATION
  Report Type: Other
  Country: CA (occurrence: None)
  Receive Date: 20220412
  Receipt Date: 20220708
  Transmission Date: 20221026
  Serious: Yes (Hospitalization)
  Sender: FDA-Public Use
  Company Number: CA-ROCHE-3066985

PATIENT
  Age: 53 Year
  Sex: Female

DRUGS (7)
  1. ACTEMRA [Suspect]
     Active Substance: TOCILIZUMAB
     Indication: Still^s disease
     Dosage: DRUG DOSE FIRST ADMINISTERED IS 700 MG MILLIGRAM(S) , ON HOLD
     Route: 042
     Dates: start: 20220331, end: 20220331
  2. CALCIUM [Concomitant]
     Active Substance: CALCIUM
     Indication: Product used for unknown indication
  3. CITALOPRAM [Concomitant]
     Active Substance: CITALOPRAM HYDROBROMIDE
     Indication: Product used for unknown indication
  4. FOLIC ACID [Concomitant]
     Active Substance: FOLIC ACID
     Indication: Product used for unknown indication
  5. IBUPROFEN [Concomitant]
     Active Substance: IBUPROFEN
     Indication: Product used for unknown indication
  6. PREDNISONE [Concomitant]
     Active Substance: PREDNISONE
     Indication: Product used for unknown indication
  7. SYNTHROID [Concomitant]
     Active Substance: LEVOTHYROXINE SODIUM
     Indication: Product used for unknown indication

REACTIONS (14)
  - Nausea [Unknown]
  - Vomiting [Unknown]
  - Dizziness [Recovering/Resolving]
  - Syncope [Recovering/Resolving]
  - Feeling cold [Unknown]
  - Dyspepsia [Unknown]
  - Abdominal distension [Unknown]
  - Retching [Recovering/Resolving]
  - Malaise [Recovering/Resolving]
  - Chest pain [Unknown]
  - Respiratory rate increased [Unknown]
  - Off label use [Unknown]
  - Diverticulitis intestinal perforated [Not Recovered/Not Resolved]
  - Retching [Unknown]

NARRATIVE: CASE EVENT DATE: 20220331
